FAERS Safety Report 6249695-0 (Version None)
Quarter: 2009Q2

REPORT INFORMATION
  Report Type: 
  Country: None (occurrence: None)
  Receive Date: 20090624
  Receipt Date: 20090612
  Transmission Date: 20091009
  Serious: Yes (Life-Threatening, Hospitalization)
  Sender: FDA-Public Use
  Company Number: PAR_03042_2009

PATIENT
  Age: 31 Year
  Sex: Male

DRUGS (5)
  1. IBUPROFEN [Suspect]
     Indication: DRUG USE FOR UNKNOWN INDICATION
     Dosage: (DF, INTERMITTENTLY)
  2. PREDNISOLONE [Suspect]
     Indication: WEGENER'S GRANULOMATOSIS
     Dosage: (60 MG, ORAL) ; (40 MG, ON A TAPERING REGIMEN ORAL)
     Route: 048
  3. TRIMETHOPRIM + SULFAMETHOXAZOLE [Suspect]
     Indication: ANTIFUNGAL PROPHYLAXIS
     Dosage: (480 MG BID ORAL)
     Route: 048
  4. CYCLOPHOSPHAMIDE [Suspect]
     Indication: WEGENER'S GRANULOMATOSIS
     Dosage: (100 MG ORAL)
     Route: 048
  5. METHYLPREDNISOLONE [Concomitant]

REACTIONS (13)
  - CHROMATURIA [None]
  - EMBOLISM VENOUS [None]
  - EPISTAXIS [None]
  - GLOMERULONEPHRITIS [None]
  - HAEMODIALYSIS [None]
  - HAEMOGLOBIN DECREASED [None]
  - HAEMOPTYSIS [None]
  - PLATELET COUNT DECREASED [None]
  - PLEURAL EFFUSION [None]
  - PULMONARY EMBOLISM [None]
  - PULMONARY HAEMORRHAGE [None]
  - VASCULITIS [None]
  - WEGENER'S GRANULOMATOSIS [None]
